FAERS Safety Report 19913297 (Version 8)
Quarter: 2023Q4

REPORT INFORMATION
  Report Type: Report from Study
  Country: CL (occurrence: CL)
  Receive Date: 20211004
  Receipt Date: 20231105
  Transmission Date: 20240110
  Serious: Yes (Life-Threatening, Other)
  Sender: FDA-Public Use
  Company Number: CL-NOVARTISPH-NVSC2021CL123013

PATIENT
  Age: 59 Year
  Sex: Female

DRUGS (5)
  1. COSENTYX [Suspect]
     Active Substance: SECUKINUMAB
     Indication: Psoriatic arthropathy
     Dosage: 300 MG, QMO
     Route: 058
     Dates: start: 20210520
  2. COSENTYX [Suspect]
     Active Substance: SECUKINUMAB
     Dosage: 300 MG, QMO
     Route: 058
     Dates: start: 20210525
  3. COSENTYX [Suspect]
     Active Substance: SECUKINUMAB
     Dosage: 300 MG, QMO
     Route: 058
     Dates: start: 20210912
  4. COSENTYX [Suspect]
     Active Substance: SECUKINUMAB
     Dosage: 300 MG, QMO (03-JUN- (YEAR WAS NOT SPECIFIED))
     Route: 058
  5. COSENTYX [Suspect]
     Active Substance: SECUKINUMAB
     Dosage: 300 MG, QMO
     Route: 058
     Dates: end: 202206

REACTIONS (29)
  - Anaesthetic complication [Unknown]
  - Choking [Unknown]
  - Arrhythmia [Unknown]
  - Peripheral nerve infection [Unknown]
  - Inflammation [Unknown]
  - Ill-defined disorder [Unknown]
  - Dyspnoea [Unknown]
  - Respiratory fatigue [Unknown]
  - Fatigue [Unknown]
  - Dry throat [Unknown]
  - Discomfort [Unknown]
  - Breast mass [Unknown]
  - Tachycardia [Unknown]
  - Feeling abnormal [Unknown]
  - Nervousness [Unknown]
  - Pain [Unknown]
  - Paranoia [Unknown]
  - Tension [Unknown]
  - Arthralgia [Unknown]
  - Mass [Unknown]
  - Gait disturbance [Unknown]
  - Fear [Unknown]
  - Swelling [Unknown]
  - Malaise [Unknown]
  - Burning sensation [Unknown]
  - Memory impairment [Unknown]
  - Perforation [Unknown]
  - Tongue injury [Unknown]
  - Hypersensitivity [Unknown]
